FAERS Safety Report 9783342 (Version 1)
Quarter: 2013Q4

REPORT INFORMATION
  Report Type: Spontaneous
  Country: TR (occurrence: None)
  Receive Date: 20131223
  Receipt Date: 20131223
  Transmission Date: 20140711
  Serious: Yes (Hospitalization)
  Sender: FDA-Public Use
  Company Number: TR-ALKEM-000441

PATIENT
  Age: 78 Year
  Sex: Male

DRUGS (1)
  1. METFORMIN [Suspect]
     Indication: TYPE 2 DIABETES MELLITUS
     Dosage: 1 DAY

REACTIONS (6)
  - Lactic acidosis [None]
  - Depressed level of consciousness [None]
  - Mental status changes [None]
  - Blood glucose increased [None]
  - Haemodialysis [None]
  - Renal impairment [None]
